FAERS Safety Report 4732148-6 (Version None)
Quarter: 2005Q3

REPORT INFORMATION
  Report Type: 
  Country: None (occurrence: None)
  Receive Date: 20050725
  Receipt Date: 20010308
  Transmission Date: 20060218
  Serious: Yes (Other)
  Sender: FDA-Public Use
  Company Number: KII-2001-0012440

PATIENT
  Sex: Female
  Weight: 40.8 kg

DRUGS (1)
  1. MS CONTIN [Suspect]
     Indication: PAIN
     Dosage: 60 MG, Q8H, UNKNOWN
     Route: 065

REACTIONS (1)
  - DRUG DEPENDENCE [None]
